FAERS Safety Report 21733283 (Version 1)
Quarter: 2022Q4

REPORT INFORMATION
  Report Type: Spontaneous
  Country: US (occurrence: None)
  Receive Date: 20221214
  Receipt Date: 20221214
  Transmission Date: 20230113
  Serious: No
  Sender: FDA-Public Use
  Company Number: None

PATIENT
  Age: 66 Year
  Sex: Female

DRUGS (1)
  1. DUPIXENT [Suspect]
     Active Substance: DUPILUMAB
     Indication: Psoriasis
     Dosage: 300MG EVERY OTHER WEEK UNDER THE SKIN
     Route: 058
     Dates: start: 202209

REACTIONS (3)
  - Device malfunction [None]
  - Device delivery system issue [None]
  - Product dose omission issue [None]

NARRATIVE: CASE EVENT DATE: 20221208
